FAERS Safety Report 9237468 (Version 1)
Quarter: 2013Q2

REPORT INFORMATION
  Report Type: Spontaneous
  Country: US (occurrence: US)
  Receive Date: 20130417
  Receipt Date: 20130417
  Transmission Date: 20140414
  Serious: No
  Sender: FDA-Public Use
  Company Number: US-PFIZER INC-2013115971

PATIENT
  Age: 45 Year
  Sex: Female
  Weight: 97.05 kg

DRUGS (4)
  1. LEVOTHYROXINE SODIUM [Suspect]
     Indication: THYROID DISORDER
     Dosage: 200 UG, 1X/DAY
     Dates: start: 2008
  2. LEVOTHYROXINE SODIUM [Suspect]
     Dosage: 300 UG, 1X/DAY
     Dates: end: 200809
  3. SYNTHROID [Suspect]
     Indication: THYROID DISORDER
     Dosage: UNK,1X/DAY
     Dates: start: 200802, end: 200806
  4. CALCITRIOL [Concomitant]
     Indication: BLOOD CALCIUM DECREASED
     Dosage: 0.25 UG, 1X/DAY

REACTIONS (6)
  - Palpitations [Recovered/Resolved]
  - Vomiting [Recovered/Resolved]
  - Malaise [Recovered/Resolved]
  - Lethargy [Recovered/Resolved]
  - Feeling abnormal [Recovered/Resolved]
  - Headache [Recovered/Resolved]
